FAERS Safety Report 8094954-2 (Version None)
Quarter: 2012Q1

REPORT INFORMATION
  Report Type: 
  Country: None (occurrence: None)
  Receive Date: 20120131
  Receipt Date: 20111031
  Transmission Date: 20120608
  Serious: No
  Sender: FDA-Public Use
  Company Number: US-ABBOTT-11P-163-0870538-00

PATIENT

DRUGS (1)
  1. CREON [Suspect]
     Indication: PANCREATITIS CHRONIC
     Dosage: 3 PILLS PER DAY

REACTIONS (1)
  - ERUCTATION [None]
